FAERS Safety Report 4870512-5 (Version None)
Quarter: 2006Q1

REPORT INFORMATION
  Report Type: 
  Country: None (occurrence: None)
  Receive Date: 20060103
  Receipt Date: 20051114
  Transmission Date: 20060701
  Serious: No
  Sender: FDA-Public Use
  Company Number: 2005PK02107

PATIENT
  Age: 18 Year
  Sex: Male

DRUGS (18)
  1. SEROQUEL [Suspect]
     Route: 048
     Dates: start: 20040201, end: 20040301
  2. SEROQUEL [Suspect]
     Route: 048
     Dates: start: 20040501, end: 20040927
  3. SEROQUEL [Suspect]
     Route: 048
     Dates: start: 20040928, end: 20050301
  4. SEROQUEL [Suspect]
     Route: 048
     Dates: start: 20050511, end: 20050513
  5. SEROQUEL [Suspect]
     Route: 048
     Dates: start: 20050514, end: 20050514
  6. SEROQUEL [Suspect]
     Route: 048
     Dates: start: 20050515, end: 20050516
  7. SEROQUEL [Suspect]
     Route: 048
     Dates: start: 20050517, end: 20050517
  8. SEROQUEL [Suspect]
     Route: 048
     Dates: start: 20050518, end: 20050522
  9. SEROQUEL [Suspect]
     Route: 048
     Dates: start: 20050523, end: 20050523
  10. SEROQUEL [Suspect]
     Route: 048
     Dates: start: 20050524, end: 20050530
  11. SEROQUEL [Suspect]
     Route: 048
     Dates: start: 20050531, end: 20050531
  12. SEROQUEL [Suspect]
     Route: 048
     Dates: start: 20050601, end: 20050705
  13. SOLIAN [Suspect]
  14. ERGENYL [Concomitant]
     Route: 048
     Dates: start: 20040904, end: 20041004
  15. ERGENYL [Concomitant]
     Route: 048
     Dates: start: 20050621, end: 20050705
  16. TAXILAN [Concomitant]
     Route: 048
     Dates: start: 20040420, end: 20040424
  17. TAXILAN [Concomitant]
     Route: 048
     Dates: start: 20040425, end: 20040427
  18. TAXILAN [Concomitant]
     Route: 048
     Dates: start: 20040428, end: 20040512

REACTIONS (3)
  - AGRANULOCYTOSIS [None]
  - DRUG ABUSER [None]
  - DRUG SCREEN POSITIVE [None]
